FAERS Safety Report 6275830-4 (Version None)
Quarter: 2009Q3

REPORT INFORMATION
  Report Type: 
  Country: None (occurrence: None)
  Receive Date: 20090721
  Receipt Date: 20090714
  Transmission Date: 20100115
  Serious: Yes (Other)
  Sender: FDA-Public Use
  Company Number: PHHY2009AT11788

PATIENT
  Sex: Female
  Weight: 64 kg

DRUGS (3)
  1. CERTICAN [Suspect]
     Indication: RENAL TRANSPLANT
     Dosage: 1.5 MG DAILY
     Route: 048
     Dates: start: 20080508, end: 20080731
  2. CERTICAN [Suspect]
     Indication: LUNG ADENOCARCINOMA
  3. APREDNISLON [Concomitant]
     Dosage: 7.5 MG/DAY

REACTIONS (6)
  - ANAEMIA [None]
  - ARTHRALGIA [None]
  - DIARRHOEA [None]
  - INFLAMMATION [None]
  - OEDEMA PERIPHERAL [None]
  - POLYARTHRITIS [None]
